FAERS Safety Report 7555409 (Version 12)
Quarter: 2012Q4

REPORT INFORMATION
  Report Type: 
  Country: CA (occurrence: CA)
  Receive Date: 20100826
  Receipt Date: 20121114
  Transmission Date: 20130627
  Serious: Yes (Other)
  Sender: FDA-Public Use
  Company Number: CA-ROCHE-GNE305627

PATIENT
  Sex: Male

DRUGS (3)
  1. XOLAIR [Suspect]
     Indication: ASTHMA
     Dosage: 375 mg, Q4W
     Route: 058
     Dates: start: 20091007
  2. PULMICORT [Concomitant]
     Indication: PRODUCT USED FOR UNKNOWN INDICATION
  3. SODIUM BICARBONATE [Concomitant]
     Indication: PRODUCT USED FOR UNKNOWN INDICATION

REACTIONS (16)
  - Hyposmia [Recovered/Resolved]
  - Ear infection [Unknown]
  - Cough [Unknown]
  - Sinusitis [Unknown]
  - Oral candidiasis [Unknown]
  - Ecchymosis [Unknown]
  - Pain [Unknown]
  - Hypoaesthesia [Unknown]
  - Nasopharyngitis [Unknown]
  - Pulmonary congestion [Unknown]
  - Rhinorrhoea [Unknown]
  - Ear pain [Unknown]
  - Hypothermia [Unknown]
  - Polyp [Unknown]
  - Oropharyngeal pain [Unknown]
  - Cough [Unknown]
